FAERS Safety Report 5988139-0 (Version None)
Quarter: 2008Q4

REPORT INFORMATION
  Report Type: 
  Country: None (occurrence: None)
  Receive Date: 20081208
  Receipt Date: 20081208
  Transmission Date: 20090506
  Serious: Yes (Hospitalization)
  Sender: FDA-Public Use
  Company Number: None

PATIENT
  Sex: Male
  Weight: 75.7507 kg

DRUGS (3)
  1. GEMCITABINE [Suspect]
     Indication: PANCREATIC CARCINOMA
     Dosage: AS ABOVE
  2. TARCEVA [Suspect]
     Indication: PANCREATIC CARCINOMA
     Dosage: AS ABOVE
  3. RADIATION 40CGY BID DAYS 1,2,8,9 [Suspect]
     Indication: PANCREATIC CARCINOMA
     Dosage: AS ABOVE

REACTIONS (2)
  - SMALL INTESTINAL OBSTRUCTION [None]
  - VOMITING [None]
